FAERS Safety Report 16928003 (Version 2)
Quarter: 2020Q1

REPORT INFORMATION
  Report Type: Spontaneous
  Country: US (occurrence: US)
  Receive Date: 20191017
  Receipt Date: 20200103
  Transmission Date: 20200409
  Serious: Yes (Death, Other)
  Sender: FDA-Public Use
  Company Number: US-AMGEN-USASP2019169430

PATIENT
  Age: 57 Year
  Sex: Male

DRUGS (7)
  1. EPIRUBICIN [Suspect]
     Active Substance: EPIRUBICIN
     Indication: OESOPHAGEAL ADENOCARCINOMA
     Dosage: UNK
     Route: 065
  2. CISPLATIN. [Suspect]
     Active Substance: CISPLATIN
     Indication: OESOPHAGEAL ADENOCARCINOMA
     Dosage: UNK
     Route: 065
  3. CAPECITABINE. [Suspect]
     Active Substance: CAPECITABINE
     Indication: OESOPHAGEAL ADENOCARCINOMA
     Dosage: UNK
     Route: 065
  4. BEVACIZUMAB. [Suspect]
     Active Substance: BEVACIZUMAB
     Indication: GASTROINTESTINAL ADENOCARCINOMA
     Dosage: UNK
     Route: 065
  5. DEXAMETHASONE. [Suspect]
     Active Substance: DEXAMETHASONE
     Indication: OESOPHAGEAL ADENOCARCINOMA
     Dosage: UNK
     Route: 065
  6. IRINOTECAN [Suspect]
     Active Substance: IRINOTECAN
     Indication: OESOPHAGEAL ADENOCARCINOMA
     Dosage: UNK
     Route: 065
  7. DOCETAXEL. [Suspect]
     Active Substance: DOCETAXEL
     Indication: OESOPHAGEAL ADENOCARCINOMA
     Dosage: UNK
     Route: 065

REACTIONS (8)
  - Ulcer [Unknown]
  - Cardio-respiratory arrest [Fatal]
  - Hypoxia [Unknown]
  - Mucosal inflammation [Unknown]
  - Mass [Unknown]
  - Haemoptysis [Unknown]
  - Vascular pseudoaneurysm [Unknown]
  - Hypotension [Unknown]
